FAERS Safety Report 7440862-7 (Version None)
Quarter: 2011Q2

REPORT INFORMATION
  Report Type: 
  Country: None (occurrence: None)
  Receive Date: 20110427
  Receipt Date: 20100108
  Transmission Date: 20111010
  Serious: Yes (Other)
  Sender: FDA-Public Use
  Company Number: US-BAYER-201010315NA

PATIENT
  Age: 42 Year
  Sex: Male
  Weight: 120.18 kg

DRUGS (35)
  1. ZOCOR [Concomitant]
     Route: 048
  2. PROCRIT [Concomitant]
     Dosage: 20,000 UNK
  3. REGLAN [Concomitant]
     Dosage: 10 MG, TID
     Route: 048
  4. AMICAR [Concomitant]
     Dosage: 5 G, DRIP
     Route: 042
     Dates: start: 20060303, end: 20060303
  5. PRAVACHOL [Concomitant]
     Dosage: 40 MG, HS
     Route: 048
     Dates: start: 20060130
  6. PLAVIX [Concomitant]
     Dosage: 75 MG, UNK
     Route: 048
  7. PROTONIX [Concomitant]
     Dosage: 40 MG, QD
     Route: 048
  8. NITROGLYCERIN [Concomitant]
     Dosage: DRIP
     Route: 042
  9. GLIPIZIDE [Concomitant]
     Dosage: 10 MG, BID
     Route: 048
     Dates: end: 20060130
  10. AVANDIA [Concomitant]
     Dosage: 8 MG, QD
     Route: 048
     Dates: start: 20060203
  11. VERSED [Concomitant]
     Dosage: UNK
     Route: 042
     Dates: start: 20060303, end: 20060303
  12. PHENERGAN [Concomitant]
     Indication: NAUSEA
     Dosage: 25 MG, UNK
     Route: 042
     Dates: start: 20060131
  13. MILRINONE [Concomitant]
     Dosage: UNK
     Route: 042
     Dates: start: 20060303
  14. LOPRESSOR [Concomitant]
     Dosage: UNK UNK, QD
     Route: 048
  15. LASIX [Concomitant]
     Dosage: 20 MG, BID
     Route: 048
     Dates: end: 20060203
  16. VERSED [Concomitant]
     Dosage: 2 MG, UNK
     Route: 042
     Dates: start: 20060131
  17. TRASYLOL [Suspect]
     Indication: CORONARY ARTERY BYPASS
     Dosage: UNK
     Route: 042
     Dates: start: 20060303
  18. FENTANYL [Concomitant]
     Dosage: 25 MG, UNK
     Route: 042
     Dates: start: 20060131
  19. EPOGEN [Concomitant]
     Dosage: 5000 WITH DIALYSIS
     Dates: start: 20060131
  20. INSULIN [INSULIN] [Concomitant]
     Dosage: DRIP
     Route: 042
     Dates: start: 20060303
  21. INSULIN [INSULIN] [Concomitant]
     Dosage: UNK
     Route: 058
  22. PLATELETS [Concomitant]
     Dosage: 10 U, UNK
     Dates: start: 20060303
  23. VERAPAMIL [Concomitant]
     Dosage: 180 MG, QD
     Route: 048
  24. LIPITOR [Concomitant]
     Dosage: 40 MG, QD
     Route: 048
     Dates: end: 20060130
  25. BACLOFEN [Concomitant]
     Dosage: 20 MG, QD
     Route: 048
  26. HEPARIN [Concomitant]
     Dosage: 5000 U, Q12HRS
     Route: 058
     Dates: start: 20060130
  27. HEPARIN [Concomitant]
     Dosage: 4,000 - 18,000 UNITS
     Route: 042
     Dates: start: 20060303, end: 20060303
  28. BENADRYL [Concomitant]
     Indication: PRURITUS
     Dosage: 50MG Q6H PRN
     Route: 042
     Dates: start: 20060130
  29. ACETYLSALICYLIC ACID SRT [Concomitant]
     Dosage: 81 MG, QD
     Route: 048
  30. DIOVAN [Concomitant]
     Dosage: 160 MG, QD
     Route: 048
  31. DILAUDID [Concomitant]
     Dosage: 30MG Q2HRS
     Route: 042
     Dates: start: 20060131
  32. FERRLECIT [FERROUS SUCCINATE] [Concomitant]
     Dosage: 125 MG, UNK
     Route: 042
     Dates: start: 20060131
  33. TEMAZEPAM [Concomitant]
     Dosage: 15 MG, UNK
     Route: 048
  34. ACETAMINOPHEN AND HYDROCODONE BITARTRATE [Concomitant]
     Dosage: 7.5/750 MG PRN
     Route: 048
  35. RED BLOOD CELLS [Concomitant]
     Dosage: 1 UNK, UNK
     Dates: start: 20060303

REACTIONS (10)
  - RENAL FAILURE [None]
  - INJURY [None]
  - STRESS [None]
  - ANXIETY [None]
  - UNEVALUABLE EVENT [None]
  - RENAL IMPAIRMENT [None]
  - RENAL INJURY [None]
  - EMOTIONAL DISTRESS [None]
  - FEAR [None]
  - PAIN [None]
